FAERS Safety Report 8478143-5 (Version None)
Quarter: 2012Q2

REPORT INFORMATION
  Report Type: 
  Country: None (occurrence: None)
  Receive Date: 20120629
  Receipt Date: 20120621
  Transmission Date: 20120825
  Serious: Yes (Other)
  Sender: FDA-Public Use
  Company Number: PHHO2012FR009492

PATIENT
  Sex: Male
  Weight: 88 kg

DRUGS (3)
  1. RITUXIMAB [Suspect]
     Indication: NON-HODGKIN'S LYMPHOMA
     Dosage: UNK
     Dates: start: 20120614
  2. PREDNISONE [Concomitant]
     Indication: ABDOMINAL PAIN UPPER
     Dosage: UNK
     Dates: start: 20120614, end: 20120523
  3. AFINITOR [Suspect]
     Indication: NON-HODGKIN'S LYMPHOMA
     Dosage: 5 MG, UNK
     Route: 048
     Dates: start: 20120614

REACTIONS (2)
  - HYPOTHERMIA [None]
  - HYPOXIA [None]
